FAERS Safety Report 6805345-3 (Version None)
Quarter: 2010Q2

REPORT INFORMATION
  Report Type: 
  Country: None (occurrence: None)
  Receive Date: 20100628
  Receipt Date: 20071206
  Transmission Date: 20101027
  Serious: No
  Sender: FDA-Public Use
  Company Number: US-PFIZER INC-2007096331

PATIENT
  Sex: Male

DRUGS (1)
  1. XALATAN [Suspect]

REACTIONS (3)
  - GROWTH OF EYELASHES [None]
  - INCORRECT STORAGE OF DRUG [None]
  - PRODUCT QUALITY ISSUE [None]
